FAERS Safety Report 15230576 (Version 1)
Quarter: 2018Q3

REPORT INFORMATION
  Report Type: Spontaneous
  Country: US (occurrence: US)
  Receive Date: 20180802
  Receipt Date: 20180802
  Transmission Date: 20181010
  Serious: No
  Sender: FDA-Public Use
  Company Number: US-BIOGEN-2015BI076917

PATIENT
  Age: 55 Year
  Sex: Female

DRUGS (1)
  1. PLEGRIDY [Suspect]
     Active Substance: PEGINTERFERON BETA-1A
     Indication: MULTIPLE SCLEROSIS
     Route: 065
     Dates: start: 20150318, end: 20150527

REACTIONS (6)
  - Urticaria [Unknown]
  - Pain in extremity [Unknown]
  - Needle fatigue [Unknown]
  - Hypersensitivity [Unknown]
  - Palpitations [Unknown]
  - Back pain [Unknown]

NARRATIVE: CASE EVENT DATE: 20150510
